FAERS Safety Report 10732567 (Version 3)
Quarter: 2015Q1

REPORT INFORMATION
  Report Type: Spontaneous
  Country: US (occurrence: None)
  Receive Date: 20150121
  Receipt Date: 20150313
  Transmission Date: 20150721
  Serious: Yes (Hospitalization)
  Sender: FDA-Public Use
  Company Number: US-001618

PATIENT
  Sex: Female

DRUGS (2)
  1. SOLUTION FOR PARENTERAL NUTRITION [Concomitant]
  2. GATTEX [Suspect]
     Active Substance: TEDUGLUTIDE\WATER
     Indication: SHORT-BOWEL SYNDROME
     Dosage: (DF SUBCUTANEOUS}
     Route: 058

REACTIONS (4)
  - Abdominal pain [None]
  - Device related infection [None]
  - Urinary tract infection [None]
  - Viral infection [None]
